FAERS Safety Report 12797173 (Version 4)
Quarter: 2017Q1

REPORT INFORMATION
  Report Type: Spontaneous
  Country: US (occurrence: US)
  Receive Date: 20160930
  Receipt Date: 20170213
  Transmission Date: 20170428
  Serious: No
  Sender: FDA-Public Use
  Company Number: US-PFIZER INC-2016455905

PATIENT
  Age: 79 Year
  Sex: Female
  Weight: 60.77 kg

DRUGS (4)
  1. IBRANCE [Suspect]
     Active Substance: PALBOCICLIB
     Dosage: 125 MG, CYCLIC (DAY 1-21 Q 28 DAYS/D1-D21, Q28 D,THEN 7D OFF)
     Route: 048
     Dates: start: 20160804, end: 20161220
  2. IBRANCE [Suspect]
     Active Substance: PALBOCICLIB
     Indication: BREAST CANCER
     Dosage: 125 MG, CYCLIC (1D-21D Q 28D)
     Route: 048
     Dates: start: 20160808
  3. IBRANCE [Suspect]
     Active Substance: PALBOCICLIB
     Dosage: 125 MG, CYCLIC (1 D-21 Q 28 DAYS)
     Route: 048
     Dates: start: 20160808
  4. IBRANCE [Suspect]
     Active Substance: PALBOCICLIB
     Dosage: 125 MG, CYCLIC (DAY 1-21 Q 28 DAYS/D1-D21, Q28 D,THEN 7D OFF)
     Route: 048

REACTIONS (8)
  - Dizziness [Unknown]
  - White blood cell count decreased [Unknown]
  - Fatigue [Not Recovered/Not Resolved]
  - Sinusitis [Unknown]
  - Neoplasm progression [Unknown]
  - Respiratory tract congestion [Unknown]
  - Stomatitis [Unknown]
  - Lip dry [Unknown]

NARRATIVE: CASE EVENT DATE: 20170206
